FAERS Safety Report 11823346 (Version 1)
Quarter: 2015Q4

REPORT INFORMATION
  Report Type: Spontaneous
  Country: FR (occurrence: FR)
  Receive Date: 20151210
  Receipt Date: 20151210
  Transmission Date: 20160305
  Serious: Yes (Hospitalization)
  Sender: FDA-Public Use
  Company Number: FR-ASTRAZENECA-2015SF20602

PATIENT
  Age: 27029 Day
  Sex: Female

DRUGS (17)
  1. XEROQUEL [Suspect]
     Active Substance: QUETIAPINE FUMARATE
     Indication: BIPOLAR DISORDER
     Route: 048
     Dates: start: 20151023, end: 20151025
  2. PRAVASTATIN [Concomitant]
     Active Substance: PRAVASTATIN\PRAVASTATIN SODIUM
     Route: 048
  3. LOXAPAC [Suspect]
     Active Substance: LOXAPINE SUCCINATE
     Indication: BIPOLAR DISORDER
     Route: 048
     Dates: start: 20151023, end: 20151027
  4. BROMAZEPAM [Concomitant]
     Active Substance: BROMAZEPAM
  5. CERIS [Concomitant]
     Active Substance: TROSPIUM CHLORIDE
     Route: 048
     Dates: end: 20151027
  6. LOXAPAC [Suspect]
     Active Substance: LOXAPINE SUCCINATE
     Indication: BIPOLAR DISORDER
     Route: 048
     Dates: start: 20151016, end: 20151020
  7. LOPERAMIDE [Concomitant]
     Active Substance: LOPERAMIDE
     Route: 048
     Dates: end: 20151027
  8. TERALITHE [Suspect]
     Active Substance: LITHIUM CARBONATE
     Route: 048
  9. LOXAPAC [Suspect]
     Active Substance: LOXAPINE SUCCINATE
     Indication: BIPOLAR DISORDER
     Route: 048
  10. AVLOCARDYL [Suspect]
     Active Substance: PROPRANOLOL HYDROCHLORIDE
     Indication: HYPERTENSION
     Route: 048
     Dates: end: 20151027
  11. TERALITHE [Suspect]
     Active Substance: LITHIUM CARBONATE
     Route: 048
     Dates: start: 20150929, end: 20151013
  12. TERALITHE [Suspect]
     Active Substance: LITHIUM CARBONATE
     Route: 048
     Dates: start: 20151016, end: 20151027
  13. LEVOTHYROX [Concomitant]
     Active Substance: LEVOTHYROXINE
     Route: 048
  14. XEROQUEL [Suspect]
     Active Substance: QUETIAPINE FUMARATE
     Indication: BIPOLAR DISORDER
     Route: 048
     Dates: start: 20151026, end: 20151027
  15. LOXAPAC [Suspect]
     Active Substance: LOXAPINE SUCCINATE
     Indication: BIPOLAR DISORDER
     Route: 048
     Dates: start: 20151020, end: 20151023
  16. VALSARTAN. [Suspect]
     Active Substance: VALSARTAN
     Indication: HYPERTENSION
     Route: 048
     Dates: end: 20151027
  17. INFLUVAC [Concomitant]
     Active Substance: INFLUENZA VIRUS VACCINE
     Route: 030
     Dates: start: 20151026, end: 20151026

REACTIONS (5)
  - Oxygen saturation decreased [Recovered/Resolved]
  - Fall [Recovered/Resolved]
  - Bradycardia [Recovered/Resolved]
  - Malaise [Recovered/Resolved]
  - Hypotension [Recovered/Resolved]

NARRATIVE: CASE EVENT DATE: 20151027
